FAERS Safety Report 15840626 (Version 1)
Quarter: 2019Q1

REPORT INFORMATION
  Report Type: Spontaneous
  Country: DE (occurrence: DE)
  Receive Date: 20190118
  Receipt Date: 20190118
  Transmission Date: 20190417
  Serious: Yes (Hospitalization, Other)
  Sender: FDA-Public Use
  Company Number: DE-TEVA-2019-DE-999914

PATIENT
  Age: 61 Year
  Sex: Female

DRUGS (2)
  1. PROGESTERONE. [Suspect]
     Active Substance: PROGESTERONE
     Indication: PREVENTION OF ENDOMETRIAL HYPERPLASIA
     Dosage: UNK
     Route: 065
     Dates: start: 20090506, end: 20180706
  2. ESTRADIOL. [Suspect]
     Active Substance: ESTRADIOL
     Indication: HORMONE REPLACEMENT THERAPY
     Dosage: 1-1/2 PUFFS DAILY (DAILY)
     Route: 062
     Dates: start: 20090506, end: 20180706

REACTIONS (1)
  - Breast cancer stage I [Recovered/Resolved with Sequelae]

NARRATIVE: CASE EVENT DATE: 20180706
